FAERS Safety Report 12541033 (Version 1)
Quarter: 2016Q3

REPORT INFORMATION
  Report Type: Report from Study
  Country: CO (occurrence: CO)
  Receive Date: 20160708
  Receipt Date: 20160708
  Transmission Date: 20161109
  Serious: Yes (Hospitalization, Other)
  Sender: FDA-Public Use
  Company Number: CO-JNJFOC-20160517658

PATIENT
  Age: 45 Year
  Sex: Female
  Weight: 100 kg

DRUGS (2)
  1. SIMPONI [Suspect]
     Active Substance: GOLIMUMAB
     Indication: ANKYLOSING SPONDYLITIS
     Route: 058
     Dates: start: 20140828
  2. SIMPONI [Suspect]
     Active Substance: GOLIMUMAB
     Indication: ANKYLOSING SPONDYLITIS
     Route: 058
     Dates: start: 20160424

REACTIONS (3)
  - Infection [Recovering/Resolving]
  - Uterine leiomyoma [Recovering/Resolving]
  - Cholelithiasis [Recovering/Resolving]

NARRATIVE: CASE EVENT DATE: 20160503
